FAERS Safety Report 11442087 (Version 3)
Quarter: 2015Q4

REPORT INFORMATION
  Report Type: Spontaneous
  Country: US (occurrence: US)
  Receive Date: 20150901
  Receipt Date: 20151016
  Transmission Date: 20160304
  Serious: No
  Sender: FDA-Public Use
  Company Number: US-PFIZER INC-2015281939

PATIENT
  Age: 62 Year
  Sex: Female
  Weight: 90 kg

DRUGS (4)
  1. LYRICA [Suspect]
     Active Substance: PREGABALIN
     Indication: DIABETIC NEUROPATHY
     Dosage: 225 MG, 2X/DAY
     Dates: start: 2012
  2. HYDROCHLOROTHIAZIDE W/TRIAMTERENE [Concomitant]
     Active Substance: HYDROCHLOROTHIAZIDE\TRIAMTERENE
     Dosage: HYDROCHLOROTHIAZIDE 37.5MG/ TRIAMTERENE 25 MG
     Dates: start: 2014
  3. ROPINIROLE. [Concomitant]
     Active Substance: ROPINIROLE
     Dosage: 4 MG, UNK
     Dates: start: 2012
  4. LYRICA [Suspect]
     Active Substance: PREGABALIN
     Indication: NEUROPATHY PERIPHERAL
     Dosage: 150 MG, UNK

REACTIONS (7)
  - Malaise [Recovered/Resolved]
  - Somnolence [Unknown]
  - Abdominal discomfort [Unknown]
  - Tremor [Unknown]
  - Formication [Unknown]
  - Drug ineffective [Recovered/Resolved]
  - Speech disorder [Unknown]

NARRATIVE: CASE EVENT DATE: 2012
